FAERS Safety Report 21729860 (Version 3)
Quarter: 2024Q2

REPORT INFORMATION
  Report Type: Spontaneous
  Country: DE (occurrence: DE)
  Receive Date: 20221214
  Receipt Date: 20240626
  Transmission Date: 20240715
  Serious: Yes (Disabling, Other)
  Sender: FDA-Public Use
  Company Number: DE-ORGANON-O2210DEU002092

PATIENT
  Sex: Female
  Weight: 51 kg

DRUGS (1)
  1. ETONOGESTREL [Suspect]
     Active Substance: ETONOGESTREL
     Indication: Contraception
     Dosage: 1 DOSAGE FORM (1 IMPLANT/1 ROD) IN LEFT UPPER ARM
     Route: 059
     Dates: start: 20190521

REACTIONS (22)
  - Device dislocation [Not Recovered/Not Resolved]
  - Ovulation disorder [Unknown]
  - General anaesthesia [Unknown]
  - Device issue [Not Recovered/Not Resolved]
  - Complication associated with device [Recovered/Resolved]
  - Complication of device removal [Not Recovered/Not Resolved]
  - Incorrect product administration duration [Unknown]
  - Fibroadenoma of breast [Recovered/Resolved]
  - Anovulatory cycle [Recovered/Resolved]
  - Breast cyst [Unknown]
  - Atrophic vulvovaginitis [Unknown]
  - Fluorosis [Unknown]
  - Varicella [Unknown]
  - Illness [Unknown]
  - Hormone level abnormal [Unknown]
  - Menstrual disorder [Unknown]
  - Vaginal haemorrhage [Unknown]
  - Ovarian cyst [Unknown]
  - Pruritus [Unknown]
  - Vaginal infection [Unknown]
  - Vaginal haemorrhage [Unknown]
  - Amenorrhoea [Recovered/Resolved]

NARRATIVE: CASE EVENT DATE: 20220401
